FAERS Safety Report 8134742-1 (Version None)
Quarter: 2012Q1

REPORT INFORMATION
  Report Type: 
  Country: None (occurrence: None)
  Receive Date: 20120214
  Receipt Date: 20120210
  Transmission Date: 20120608
  Serious: Yes (Life-Threatening, Hospitalization, Other)
  Sender: FDA-Public Use
  Company Number: DE-PFIZER INC-2012036591

PATIENT
  Age: 79 Year
  Sex: Female
  Weight: 102 kg

DRUGS (7)
  1. DICLOFENAC SODIUM [Suspect]
     Dosage: 75 MG, 1X/DAY
     Route: 048
     Dates: start: 20110101, end: 20110928
  2. CIPROFLOXACIN [Suspect]
     Indication: URINARY TRACT INFECTION BACTERIAL
     Dosage: 250 MG, 2X/DAY
     Route: 048
     Dates: start: 20110906, end: 20110915
  3. AMLODIPINE [Concomitant]
  4. DOXAZOSIN MESYLATE [Suspect]
     Indication: HYPERTENSION
     Dosage: UNK
     Route: 048
     Dates: start: 20110601, end: 20110928
  5. XIPAMIDE [Suspect]
     Dosage: 10 MG, 1X/DAY
     Route: 048
     Dates: start: 20110805, end: 20110928
  6. SPIRONOLACTONE [Concomitant]
  7. TORSEMIDE [Concomitant]

REACTIONS (1)
  - RENAL FAILURE ACUTE [None]
